FAERS Safety Report 10027377 (Version 3)
Quarter: 2014Q3

REPORT INFORMATION
  Report Type: Report from Study
  Country: JP (occurrence: JP)
  Receive Date: 20140321
  Receipt Date: 20140711
  Transmission Date: 20150326
  Serious: Yes (Hospitalization, Other)
  Sender: FDA-Public Use
  Company Number: JP-AMGEN-JPNCT2014019927

PATIENT
  Age: 67 Year
  Sex: Male
  Weight: 61 kg

DRUGS (19)
  1. DARBEPOETIN ALFA [Suspect]
     Active Substance: DARBEPOETIN ALFA
     Indication: NEPHROGENIC ANAEMIA
     Dosage: 40 MUG, QD
     Route: 058
     Dates: start: 20110303, end: 20120412
  2. MAGLAX [Concomitant]
     Active Substance: MAGNESIUM OXIDE
     Indication: CONSTIPATION PROPHYLAXIS
     Dosage: UNK
     Route: 048
  3. MUCODYNE [Concomitant]
     Active Substance: CARBOCYSTEINE
     Dosage: UNK
     Route: 048
  4. BIO-THREE [Concomitant]
     Active Substance: HERBALS
     Dosage: UNK
     Route: 048
  5. MEYLON [Concomitant]
     Active Substance: SODIUM BICARBONATE
     Indication: DIZZINESS
     Dosage: UNK
     Route: 042
  6. PENTAGIN                           /00052102/ [Concomitant]
     Active Substance: PENTAZOCINE HYDROCHLORIDE
     Dosage: UNK
     Route: 065
  7. METHYCOBAL [Concomitant]
     Active Substance: METHYLCOBALAMIN
     Indication: DIZZINESS
     Dosage: UNK
     Route: 048
  8. FEBURIC [Concomitant]
     Active Substance: FEBUXOSTAT
     Dosage: UNK
     Route: 048
  9. PARIET [Concomitant]
     Active Substance: RABEPRAZOLE SODIUM
     Dosage: UNK
     Route: 048
  10. MIYA-BM [Concomitant]
     Active Substance: CLOSTRIDIUM BUTYRICUM SPORES STRAIN M-55
     Dosage: UNK
     Route: 048
  11. AMLODIN [Concomitant]
     Active Substance: AMLODIPINE BESYLATE
     Indication: NEPHROSCLEROSIS
     Dosage: UNK
     Route: 048
  12. ZYLORIC [Concomitant]
     Active Substance: ALLOPURINOL
     Dosage: UNK
     Route: 048
  13. TAKEPRON [Concomitant]
     Active Substance: LANSOPRAZOLE
     Dosage: UNK
     Route: 048
  14. BAYASPIRIN [Concomitant]
     Active Substance: ASPIRIN
     Dosage: UNK
     Route: 048
  15. CARDENALIN [Concomitant]
     Active Substance: DOXAZOSIN MESYLATE
     Indication: NEPHROSCLEROSIS
     Dosage: UNK
     Route: 048
  16. ALLEGRA [Concomitant]
     Active Substance: FEXOFENADINE HYDROCHLORIDE
     Indication: RHINITIS ALLERGIC
     Dosage: UNK
     Route: 048
  17. ALDOMET [Concomitant]
     Active Substance: METHYLDOPA
     Indication: NEPHROSCLEROSIS
     Dosage: UNK
     Route: 048
  18. ADALAT [Concomitant]
     Active Substance: NIFEDIPINE
     Indication: NEPHROSCLEROSIS
     Dosage: UNK
     Route: 048
  19. KENALOG                            /00031902/ [Concomitant]
     Indication: STOMATITIS
     Dosage: UNK
     Route: 061

REACTIONS (3)
  - Fall [Recovered/Resolved]
  - Pulmonary hypertension [Recovering/Resolving]
  - Angina pectoris [Recovered/Resolved]

NARRATIVE: CASE EVENT DATE: 20110325
